FAERS Safety Report 8198428-X (Version None)
Quarter: 2012Q1

REPORT INFORMATION
  Report Type: 
  Country: None (occurrence: None)
  Receive Date: 20120309
  Receipt Date: 20120302
  Transmission Date: 20120608
  Serious: Yes (Other)
  Sender: FDA-Public Use
  Company Number: PHHY2012BR019421

PATIENT
  Sex: Female

DRUGS (2)
  1. ALPRAZOLAM [Concomitant]
     Dosage: 50 MG, BID
     Route: 048
  2. ATENOLOL [Suspect]
     Indication: BLOOD PRESSURE
     Dosage: 50 MG, BID
     Route: 048

REACTIONS (4)
  - PAIN [None]
  - BLOOD PRESSURE INCREASED [None]
  - CHEST PAIN [None]
  - FATIGUE [None]
